FAERS Safety Report 21697060 (Version 1)
Quarter: 2022Q4

REPORT INFORMATION
  Report Type: Spontaneous
  Country: FR (occurrence: FR)
  Receive Date: 20221208
  Receipt Date: 20221208
  Transmission Date: 20230113
  Serious: Yes (Hospitalization)
  Sender: FDA-Public Use
  Company Number: None

PATIENT
  Age: 55 Year
  Sex: Female
  Weight: 57.2 kg

DRUGS (4)
  1. PREDNISONE [Suspect]
     Active Substance: PREDNISONE
     Indication: Back pain
     Dosage: IN TOTAL
     Route: 014
     Dates: start: 20220928, end: 20220928
  2. XYLOCAINE [Suspect]
     Active Substance: LIDOCAINE HYDROCHLORIDE
     Indication: Anaesthesia
     Route: 050
     Dates: start: 20220928, end: 20220928
  3. CHLORHEXIDINE [Suspect]
     Active Substance: CHLORHEXIDINE
     Indication: Infection prophylaxis
     Route: 003
     Dates: start: 20220928, end: 20220928
  4. IOPAMIRON [Suspect]
     Active Substance: IOPAMIDOL
     Indication: Discogram
     Dosage: (200 MG IODINE PER ML), SOLUTION INJECTABLE ; IN TOTAL
     Route: 014
     Dates: start: 20220928, end: 20220928

REACTIONS (1)
  - Henoch-Schonlein purpura [Recovering/Resolving]

NARRATIVE: CASE EVENT DATE: 20220928
